FAERS Safety Report 8491021-0 (Version None)
Quarter: 2012Q3

REPORT INFORMATION
  Report Type: 
  Country: None (occurrence: None)
  Receive Date: 20120706
  Receipt Date: 20120628
  Transmission Date: 20120928
  Serious: Yes (Other)
  Sender: FDA-Public Use
  Company Number: US-BAYER-2011-010356

PATIENT
  Age: 22 Year

DRUGS (5)
  1. YASMIN [Suspect]
     Indication: PRODUCT USED FOR UNKNOWN INDICATION
     Dosage: UNK
     Dates: start: 20090407, end: 20100715
  2. TYLENOL W/ CODEINE NO. 3 [Concomitant]
     Dosage: 2 TABLETS PRN
     Route: 048
  3. SALINE [Concomitant]
     Dosage: 1 SPRAY PRN
     Route: 045
  4. KEFLEX [Concomitant]
     Indication: URINARY TRACT INFECTION
     Route: 048
  5. OTHER ANALGESICS AND ANTIPYRETICS [Concomitant]
     Dosage: 2 TABLETS PRN
     Route: 048

REACTIONS (3)
  - CHOLECYSTECTOMY [None]
  - PAIN [None]
  - CHOLELITHIASIS [None]
